FAERS Safety Report 12682796 (Version 4)
Quarter: 2020Q3

REPORT INFORMATION
  Report Type: Spontaneous
  Country: US (occurrence: US)
  Receive Date: 20160825
  Receipt Date: 20200810
  Transmission Date: 20201102
  Serious: Yes (Hospitalization)
  Sender: FDA-Public Use
  Company Number: US-ROCHE-1721613

PATIENT
  Age: 70 Year
  Sex: Female

DRUGS (17)
  1. ADVAIR HFA [Suspect]
     Active Substance: FLUTICASONE PROPIONATE\SALMETEROL XINAFOATE
     Indication: PRODUCT USED FOR UNKNOWN INDICATION
     Dosage: 500/50 MCG
     Route: 065
     Dates: start: 2005
  2. ESTRACE [Concomitant]
     Active Substance: ESTRADIOL
  3. PATADAY [Concomitant]
     Active Substance: OLOPATADINE HYDROCHLORIDE
  4. BUMEX [Concomitant]
     Active Substance: BUMETANIDE
  5. PROTONIX [Concomitant]
     Active Substance: PANTOPRAZOLE SODIUM
  6. PROVENTIL [Concomitant]
     Active Substance: ALBUTEROL
  7. BREO ELLIPTA [Suspect]
     Active Substance: FLUTICASONE FUROATE\VILANTEROL TRIFENATATE
     Indication: ASTHMA
     Route: 065
     Dates: start: 2014
  8. FUROSEMIDE. [Concomitant]
     Active Substance: FUROSEMIDE
  9. CLARITIN [Concomitant]
     Active Substance: LORATADINE
  10. PRADAXA [Concomitant]
     Active Substance: DABIGATRAN ETEXILATE MESYLATE
  11. XOLAIR [Suspect]
     Active Substance: OMALIZUMAB
     Indication: ASTHMA
     Route: 058
     Dates: start: 2007, end: 201601
  12. LORATADINE. [Concomitant]
     Active Substance: LORATADINE
  13. SPIRONOLACTONE. [Concomitant]
     Active Substance: SPIRONOLACTONE
  14. DIGOXIN. [Concomitant]
     Active Substance: DIGOXIN
     Dosage: 125MCG TAB
  15. SYMBICORT [Concomitant]
     Active Substance: BUDESONIDE\FORMOTEROL FUMARATE DIHYDRATE
  16. PREDNISONE. [Suspect]
     Active Substance: PREDNISONE
     Indication: PRODUCT USED FOR UNKNOWN INDICATION
     Route: 065
     Dates: start: 2007
  17. METOPROLOL. [Concomitant]
     Active Substance: METOPROLOL

REACTIONS (14)
  - Diverticulitis [Recovered/Resolved]
  - Dysphonia [Not Recovered/Not Resolved]
  - Gastrooesophageal reflux disease [Not Recovered/Not Resolved]
  - Respiratory tract infection [Recovering/Resolving]
  - Chest discomfort [Unknown]
  - Dysphagia [Not Recovered/Not Resolved]
  - Erosive oesophagitis [Not Recovered/Not Resolved]
  - Dyspnoea [Unknown]
  - Atrial fibrillation [Unknown]
  - Illness [Unknown]
  - Nodule [Not Recovered/Not Resolved]
  - Swelling [Not Recovered/Not Resolved]
  - Pneumonia [Recovered/Resolved]
  - Oropharyngeal pain [Unknown]

NARRATIVE: CASE EVENT DATE: 201601
